FAERS Safety Report 15604418 (Version 3)
Quarter: 2018Q4

REPORT INFORMATION
  Report Type: Report from Study
  Country: US (occurrence: US)
  Receive Date: 20181110
  Receipt Date: 20181226
  Transmission Date: 20190205
  Serious: Yes (Other)
  Sender: FDA-Public Use
  Company Number: PHEH2018US046579

PATIENT
  Sex: Female

DRUGS (2)
  1. METHOTREXATE INJECTION [Suspect]
     Active Substance: METHOTREXATE
     Indication: PRODUCT USED FOR UNKNOWN INDICATION
     Dosage: UNK
     Route: 065
  2. COSENTYX [Suspect]
     Active Substance: SECUKINUMAB
     Indication: PSORIATIC ARTHROPATHY
     Dosage: 150 MG, QMO
     Route: 058

REACTIONS (6)
  - Scar [Not Recovered/Not Resolved]
  - Pain [Unknown]
  - Psoriasis [Recovered/Resolved]
  - Drug ineffective [Unknown]
  - Skin fissures [Recovered/Resolved]
  - Cellulitis [Recovered/Resolved]
